FAERS Safety Report 21945240 (Version 1)
Quarter: 2023Q1

REPORT INFORMATION
  Report Type: Spontaneous
  Country: US (occurrence: US)
  Receive Date: 20230202
  Receipt Date: 20230202
  Transmission Date: 20230417
  Serious: Yes (Death, Other)
  Sender: FDA-Public Use
  Company Number: US-SANOFI-01469028

PATIENT
  Sex: Male

DRUGS (1)
  1. PLAVIX [Suspect]
     Active Substance: CLOPIDOGREL BISULFATE
     Indication: Cerebrovascular accident prophylaxis
     Dosage: UNK

REACTIONS (10)
  - Cerebrovascular accident [Fatal]
  - Renal impairment [Fatal]
  - Fall [Fatal]
  - Head injury [Fatal]
  - Motor dysfunction [Fatal]
  - Loss of consciousness [Unknown]
  - Cold sweat [Unknown]
  - Gastrooesophageal reflux disease [Unknown]
  - Dyspepsia [Unknown]
  - Headache [Unknown]
